FAERS Safety Report 16366729 (Version 4)
Quarter: 2019Q3

REPORT INFORMATION
  Report Type: Spontaneous
  Country: JP (occurrence: JP)
  Receive Date: 20190529
  Receipt Date: 20190807
  Transmission Date: 20191004
  Serious: Yes (Hospitalization, Other)
  Sender: FDA-Public Use
  Company Number: JP-PFIZER INC-2019220235

PATIENT
  Age: 8 Month
  Sex: Male
  Weight: 1.38 kg

DRUGS (2)
  1. PREDNISOLONE. [Suspect]
     Active Substance: PREDNISOLONE
     Dosage: 0.35 MG/KG, DAILY
  2. CORTRIL [Suspect]
     Active Substance: HYDROCORTISONE
     Indication: HYPOGLYCAEMIA
     Dosage: 1.4 MG/KG

REACTIONS (1)
  - Pneumocystis jirovecii pneumonia [Recovered/Resolved]
